FAERS Safety Report 24903942 (Version 2)
Quarter: 2025Q1

REPORT INFORMATION
  Report Type: Spontaneous
  Country: CZ (occurrence: CZ)
  Receive Date: 20250130
  Receipt Date: 20250213
  Transmission Date: 20250409
  Serious: Yes (Other)
  Sender: TEVA
  Company Number: CZ-TEVA-VS-3290382

PATIENT
  Age: 29 Year
  Sex: Male

DRUGS (4)
  1. BUPROPION [Interacting]
     Active Substance: BUPROPION
     Indication: Anxiety
     Route: 065
  2. ARIPIPRAZOLE [Interacting]
     Active Substance: ARIPIPRAZOLE
     Indication: Schizophrenia
     Dosage: AMPULE
     Route: 030
  3. QUETIAPINE [Concomitant]
     Active Substance: QUETIAPINE
     Indication: Schizophrenia
     Route: 065
  4. CLONAZEPAM [Concomitant]
     Active Substance: CLONAZEPAM
     Indication: Schizophrenia
     Route: 065

REACTIONS (3)
  - Drug interaction [Unknown]
  - Off label use [Unknown]
  - Drug level increased [Unknown]
